FAERS Safety Report 9913497 (Version 1)
Quarter: 2014Q1

REPORT INFORMATION
  Report Type: Spontaneous
  Country: US (occurrence: None)
  Receive Date: 20140219
  Receipt Date: 20140219
  Transmission Date: 20141002
  Serious: Yes (Hospitalization)
  Sender: FDA-Public Use
  Company Number: None

PATIENT
  Age: 60 Year
  Sex: Male
  Weight: 150.7 kg

DRUGS (3)
  1. CARBOPLATIN [Suspect]
     Dosage: AUC=2 X 5 DOSES
  2. PACITAXEL (TAXOL) [Suspect]
     Indication: PRODUCT USED FOR UNKNOWN INDICATION
     Dosage: DOSE REDUCED FOR DOSE 4 AND 5 TO 1
  3. PET-CT [Suspect]

REACTIONS (8)
  - Musculoskeletal pain [None]
  - Swelling [None]
  - Drug effect decreased [None]
  - Fall [None]
  - Joint injury [None]
  - Arthralgia [None]
  - Haematoma [None]
  - Seroma [None]
